FAERS Safety Report 24831690 (Version 1)
Quarter: 2025Q1

REPORT INFORMATION
  Report Type: Spontaneous
  Country: US (occurrence: US)
  Receive Date: 20250110
  Receipt Date: 20250110
  Transmission Date: 20250409
  Serious: Yes (Death, Hospitalization, Other)
  Sender: BAYER HEALTHCARE LLC
  Company Number: US-BAYER-2025A002954

PATIENT
  Age: 40 Year
  Sex: Female

DRUGS (2)
  1. ASPIRIN [Suspect]
     Active Substance: ASPIRIN
     Route: 048
  2. METHAMPHETAMINE [Suspect]
     Active Substance: METHAMPHETAMINE

REACTIONS (16)
  - Toxicity to various agents [Fatal]
  - Seizure [Fatal]
  - Intentional overdose [Fatal]
  - Hyperkalaemia [Fatal]
  - Pulseless electrical activity [Fatal]
  - Cardiac arrest [Fatal]
  - Hypertension [None]
  - Hyperthermia [None]
  - Confusional state [None]
  - Syncope [None]
  - Atrioventricular block first degree [None]
  - Atrioventricular block second degree [None]
  - Rhythm idioventricular [None]
  - Ventricular tachycardia [None]
  - Ventricular failure [None]
  - Maternal exposure during pregnancy [None]
